FAERS Safety Report 14554316 (Version 10)
Quarter: 2020Q1

REPORT INFORMATION
  Report Type: Spontaneous
  Country: PL (occurrence: PL)
  Receive Date: 20180220
  Receipt Date: 20200204
  Transmission Date: 20200409
  Serious: Yes (Hospitalization, Other)
  Sender: FDA-Public Use
  Company Number: PHHY2017PL153367

PATIENT
  Age: 35 Year
  Sex: Male

DRUGS (26)
  1. DARUNAVIR [Suspect]
     Active Substance: DARUNAVIR
     Indication: ANTIRETROVIRAL THERAPY
     Dosage: UNK
     Route: 065
  2. ATORVASTATIN [Suspect]
     Active Substance: ATORVASTATIN
     Indication: HIV INFECTION
  3. FENOFIBRATE. [Suspect]
     Active Substance: FENOFIBRATE
     Indication: DYSLIPIDAEMIA
     Dosage: 267 MG, UNK
     Route: 065
  4. ABACAVIR. [Suspect]
     Active Substance: ABACAVIR
     Indication: HIV INFECTION
  5. RITONAVIR. [Suspect]
     Active Substance: RITONAVIR
     Route: 065
  6. EMTRIVA [Suspect]
     Active Substance: EMTRICITABINE
     Indication: HIV INFECTION
     Dosage: UNK
     Route: 065
  7. DARUNAVIR [Suspect]
     Active Substance: DARUNAVIR
     Indication: HIV INFECTION
  8. ABACAVIR. [Suspect]
     Active Substance: ABACAVIR
     Indication: ANTIRETROVIRAL THERAPY
     Dosage: UNK
     Route: 065
  9. LAMIVUDINE. [Suspect]
     Active Substance: LAMIVUDINE
     Indication: ANTIRETROVIRAL THERAPY
  10. EICOSAPENTAENOIC ACID [Suspect]
     Active Substance: ICOSAPENT
     Indication: HYPERTRIGLYCERIDAEMIA
     Dosage: UNK
     Route: 065
  11. RITONAVIR. [Suspect]
     Active Substance: RITONAVIR
     Route: 065
  12. BIOCARDINE OMEGA 3 [Suspect]
     Active Substance: DOCONEXENT\ICOSAPENT\OMEGA-3 FATTY ACIDS
     Indication: HYPERTRIGLYCERIDAEMIA
     Dosage: UNK
     Route: 065
  13. RITONAVIR. [Suspect]
     Active Substance: RITONAVIR
     Route: 065
  14. ATAZANAVIR. [Suspect]
     Active Substance: ATAZANAVIR
     Indication: HIV INFECTION
     Dosage: UNK
     Route: 065
  15. EMTRIVA [Suspect]
     Active Substance: EMTRICITABINE
     Indication: ANTIRETROVIRAL THERAPY
  16. ROSUVASTATIN. [Concomitant]
     Active Substance: ROSUVASTATIN
     Indication: HYPERTRIGLYCERIDAEMIA
     Dosage: 40 MG, UNK
     Route: 065
  17. FENOFIBRATE. [Suspect]
     Active Substance: FENOFIBRATE
     Indication: HYPERTRIGLYCERIDAEMIA
  18. VIREAD [Suspect]
     Active Substance: TENOFOVIR DISOPROXIL FUMARATE
     Indication: HIV INFECTION
  19. EMTRICITABINE [Concomitant]
     Active Substance: EMTRICITABINE
     Indication: ANTIRETROVIRAL THERAPY
     Dosage: UNK
     Route: 065
  20. ATORVASTATIN [Suspect]
     Active Substance: ATORVASTATIN
     Indication: ANTIRETROVIRAL THERAPY
     Dosage: 40 MG
     Route: 065
  21. LAMIVUDINE. [Suspect]
     Active Substance: LAMIVUDINE
     Indication: HIV INFECTION
     Dosage: UNK
     Route: 065
  22. VIREAD [Suspect]
     Active Substance: TENOFOVIR DISOPROXIL FUMARATE
     Indication: ANTIRETROVIRAL THERAPY
     Dosage: UNK
     Route: 065
  23. RITONAVIR. [Suspect]
     Active Substance: RITONAVIR
     Indication: ANTIRETROVIRAL THERAPY
     Route: 065
  24. ATAZANAVIR. [Suspect]
     Active Substance: ATAZANAVIR
     Indication: ANTIRETROVIRAL THERAPY
  25. ATORVASTATIN [Suspect]
     Active Substance: ATORVASTATIN
     Indication: HYPERTRIGLYCERIDAEMIA
  26. RITONAVIR. [Suspect]
     Active Substance: RITONAVIR
     Indication: HIV INFECTION
     Dosage: UNK
     Route: 065

REACTIONS (5)
  - Acute myocardial infarction [Recovered/Resolved]
  - Cardiovascular disorder [Unknown]
  - Myocardial infarction [Recovered/Resolved]
  - Coronary artery disease [Recovered/Resolved]
  - Hypertriglyceridaemia [Recovering/Resolving]

NARRATIVE: CASE EVENT DATE: 20120822
